FAERS Safety Report 10228508 (Version 1)
Quarter: 2014Q2

REPORT INFORMATION
  Report Type: Spontaneous
  Country: GB (occurrence: GB)
  Receive Date: 20140610
  Receipt Date: 20140610
  Transmission Date: 20141212
  Serious: Yes (Hospitalization)
  Sender: FDA-Public Use
  Company Number: GB-TEVA-485939ISR

PATIENT
  Age: 68 Year
  Sex: Female
  Weight: 59 kg

DRUGS (8)
  1. PRAVASTATIN [Suspect]
     Indication: HYPERCHOLESTEROLAEMIA
     Dosage: ORIGINALLY 10MG UNTIL 23/08/2011, THEN 5MG.
     Route: 048
     Dates: start: 20110606, end: 20110823
  2. PRAVASTATIN [Suspect]
     Indication: HYPERCHOLESTEROLAEMIA
     Dosage: ORIGINALLY 10MG UNTIL 23/08/2011, THEN 5MG
     Route: 048
     Dates: start: 20110823, end: 20110907
  3. ATORVASTATIN [Concomitant]
     Indication: BLOOD CHOLESTEROL INCREASED
     Route: 048
     Dates: start: 20101211, end: 20110517
  4. ATENOLOL [Concomitant]
  5. ROSUVASTATIN [Concomitant]
     Indication: BLOOD CHOLESTEROL INCREASED
     Dosage: 5MG
     Route: 048
     Dates: start: 20100714, end: 20101209
  6. VITAMIN D3 [Concomitant]
  7. BISOPROLOL [Concomitant]
  8. CALCIUM [Concomitant]

REACTIONS (3)
  - Myalgia [Recovered/Resolved with Sequelae]
  - Pruritus [Recovered/Resolved with Sequelae]
  - Blister [Recovered/Resolved with Sequelae]
